FAERS Safety Report 21507598 (Version 2)
Quarter: 2022Q4

REPORT INFORMATION
  Report Type: Report from Study
  Country: IT (occurrence: IT)
  Receive Date: 20221026
  Receipt Date: 20221108
  Transmission Date: 20230112
  Serious: Yes (Hospitalization, Other)
  Sender: FDA-Public Use
  Company Number: None

PATIENT

DRUGS (9)
  1. PEGASPARGASE [Suspect]
     Active Substance: PEGASPARGASE
     Indication: Acute lymphocytic leukaemia
     Dosage: 2000 U/I ON 21/07 AND 01/08/22
     Route: 042
     Dates: start: 20220721, end: 20220801
  2. THIOGUANINE ANHYDROUS [Suspect]
     Active Substance: THIOGUANINE ANHYDROUS
     Indication: Acute lymphocytic leukaemia
     Dosage: 40 MG/DAY
     Route: 048
     Dates: start: 20220905, end: 20220916
  3. IDARUBICIN [Suspect]
     Active Substance: IDARUBICIN
     Indication: Acute lymphocytic leukaemia
     Dosage: 12 MG ON DATE 21/07, 28/07, 05/08 12/08/22
     Route: 042
     Dates: start: 20220721, end: 20220812
  4. CYTARABINE [Suspect]
     Active Substance: CYTARABINE
     Indication: Acute lymphocytic leukaemia
     Dosage: 30 MG ON DATE 20/07, 10/08 E 07/09/22
     Route: 037
     Dates: start: 20220720, end: 20220907
  5. METHOTREXATE (METHOTREXATE SODIUM) [Suspect]
     Active Substance: METHOTREXATE SODIUM
     Indication: Acute lymphocytic leukaemia
     Dosage: 12 MG ON DATE 20/07, 10/08, 07/09/22
     Route: 037
     Dates: start: 20220720, end: 20220907
  6. VINCRISTINE [Suspect]
     Active Substance: VINCRISTINE
     Indication: Acute lymphocytic leukaemia
     Dosage: 2 MG ON DATE 21/07, 28/07, 05/08 12/08/22
     Route: 042
     Dates: start: 20220721, end: 20220812
  7. CYCLOPHOSPHAMIDE [Suspect]
     Active Substance: CYCLOPHOSPHAMIDE
     Indication: Acute lymphocytic leukaemia
     Dosage: 2000 MG/DAY ON DATE 05/09/22
     Route: 042
     Dates: start: 20220905, end: 20220905
  8. METHYLPREDNISOLONE [Concomitant]
     Active Substance: METHYLPREDNISOLONE
     Indication: Acute lymphocytic leukaemia
     Dosage: 10 MG ON DATE 20/07, 10/08 E 07/09/22
     Route: 037
     Dates: start: 20220720, end: 20220907
  9. DECADRON [Concomitant]
     Active Substance: DEXAMETHASONE
     Indication: Acute lymphocytic leukaemia
     Dosage: 12 MG/DAY SINCE 21/07 TO 04/08/22, 6 MG/DAY SINCE 05/08 TO 07/08/22, 3 MG/DAY SINCE 08/08 TO 10/08/2
     Route: 048
     Dates: start: 20220721, end: 20220810

REACTIONS (12)
  - Stomatitis [Recovered/Resolved]
  - Febrile neutropenia [Recovered/Resolved]
  - Leukopenia [Not Recovered/Not Resolved]
  - Pain in extremity [Recovered/Resolved]
  - Hypercholesterolaemia [Unknown]
  - Lipase increased [Unknown]
  - Hyperglycaemia [Recovered/Resolved]
  - Drug-induced liver injury [Recovered/Resolved]
  - Hypogammaglobulinaemia [Unknown]
  - Back pain [Recovered/Resolved]
  - Pancytopenia [Recovering/Resolving]
  - Anaemia [Not Recovered/Not Resolved]

NARRATIVE: CASE EVENT DATE: 20220726
